FAERS Safety Report 17943530 (Version 1)
Quarter: 2020Q2

REPORT INFORMATION
  Report Type: Spontaneous
  Country: US (occurrence: US)
  Receive Date: 20200625
  Receipt Date: 20200625
  Transmission Date: 20200714
  Serious: No
  Sender: FDA-Public Use
  Company Number: US-ASTRAZENECA-2020SE77479

PATIENT
  Sex: Male
  Weight: 81.6 kg

DRUGS (1)
  1. SEROQUEL [Suspect]
     Active Substance: QUETIAPINE FUMARATE
     Indication: INSOMNIA
     Dosage: AT NIGHT
     Route: 048

REACTIONS (4)
  - Dizziness [Recovering/Resolving]
  - Drug ineffective [Unknown]
  - Headache [Recovering/Resolving]
  - Intentional product misuse [Not Recovered/Not Resolved]
